FAERS Safety Report 5800831-7 (Version None)
Quarter: 2008Q3

REPORT INFORMATION
  Report Type: 
  Country: None (occurrence: None)
  Receive Date: 20080701
  Receipt Date: 20080618
  Transmission Date: 20090109
  Serious: Yes (Other)
  Sender: FDA-Public Use
  Company Number: GXKR2008ES05862

PATIENT
  Age: 47 Year
  Sex: Male

DRUGS (4)
  1. OMEPRAZOLE [Suspect]
     Indication: DUODENAL ULCER
  2. EPINEPHRINE [Concomitant]
  3. POLIDOCANOL (POLIDOCANOL) [Concomitant]
  4. METOCLOPRAMIDE [Concomitant]

REACTIONS (1)
  - ACUTE GENERALISED EXANTHEMATOUS PUSTULOSIS [None]
